FAERS Safety Report 14386414 (Version 2)
Quarter: 2018Q4

REPORT INFORMATION
  Report Type: Spontaneous
  Country: US (occurrence: US)
  Receive Date: 20180115
  Receipt Date: 20181008
  Transmission Date: 20190204
  Serious: Yes (Other)
  Sender: FDA-Public Use
  Company Number: US-SA-2017SA148172

PATIENT
  Age: 57 Year
  Sex: Female
  Weight: 82 kg

DRUGS (3)
  1. TAXOTERE [Suspect]
     Active Substance: DOCETAXEL
     Indication: BREAST CANCER FEMALE
     Dosage: UNK UNK,QCY
     Route: 051
     Dates: start: 20070801, end: 20070801
  2. PERCOCET [OXYCODONE HYDROCHLORIDE;OXYCODONE TEREPHTHALATE;PARACETAMOL] [Concomitant]
  3. CELEBREX [Concomitant]
     Active Substance: CELECOXIB

REACTIONS (6)
  - Emotional distress [Unknown]
  - Anxiety [Unknown]
  - Alopecia [Not Recovered/Not Resolved]
  - Psychological trauma [Unknown]
  - Impaired quality of life [Unknown]
  - Pain [Unknown]

NARRATIVE: CASE EVENT DATE: 200706
